FAERS Safety Report 5908423-6 (Version None)
Quarter: 2008Q3

REPORT INFORMATION
  Report Type: 
  Country: None (occurrence: None)
  Receive Date: 20080930
  Receipt Date: 20080915
  Transmission Date: 20090109
  Serious: Yes (Hospitalization)
  Sender: FDA-Public Use
  Company Number: 2008002180

PATIENT
  Age: 66 Year
  Sex: Male
  Weight: 84.4 kg

DRUGS (11)
  1. ERLOTINIB (ERLOTINIB) (TABLET) (ERLOTINIB) [Suspect]
     Indication: OESOPHAGEAL CARCINOMA
     Dosage: 100 MG, QD, ORAL
     Route: 048
     Dates: start: 20080728, end: 20080822
  2. BEVACIZUMAB (INJECTION) [Suspect]
     Indication: OESOPHAGEAL CARCINOMA
     Dosage: 15 MG/KG, DAYS 1 + 22, INTRAVENOUS
     Route: 042
     Dates: start: 20080728, end: 20080818
  3. FLUOROURACIL [Suspect]
     Indication: OESOPHAGEAL CARCINOMA
     Dosage: 225 MG/M2, QD; INTRAVENOUS
     Route: 042
     Dates: start: 20080728, end: 20080822
  4. CARBOPLATIN [Suspect]
     Indication: OESOPHAGEAL CARCINOMA
     Dosage: 5 DAYS 1 + 22, INTRAVENOUS
     Route: 042
     Dates: start: 20080728, end: 20080818
  5. PACLITAXEL [Suspect]
     Indication: OESOPHAGEAL CARCINOMA
     Dosage: 200 MG, DAYS 1 + 22, INTRAVENOUS
     Route: 042
     Dates: start: 20080728, end: 20080818
  6. RADIOTHERAPY [Suspect]
     Indication: OESOPHAGEAL CARCINOMA
     Dates: start: 20080728, end: 20080821
  7. MULTI-VITAMINS [Concomitant]
  8. OXYCODONE HCL [Concomitant]
  9. ACETAMINOPHEN [Concomitant]
  10. PANTOPRAZOLE SODIUM [Concomitant]
  11. ONDANSETRON HYDROCHLORIDE [Concomitant]

REACTIONS (8)
  - DEHYDRATION [None]
  - DIARRHOEA [None]
  - DYSPHAGIA [None]
  - LEUKOPENIA [None]
  - LIP PAIN [None]
  - MUCOSAL INFLAMMATION [None]
  - OESOPHAGITIS [None]
  - ORAL PAIN [None]
